FAERS Safety Report 13069949 (Version 1)
Quarter: 2016Q4

REPORT INFORMATION
  Report Type: Spontaneous
  Country: JP (occurrence: JP)
  Receive Date: 20161228
  Receipt Date: 20161228
  Transmission Date: 20170207
  Serious: Yes (Hospitalization)
  Sender: FDA-Public Use
  Company Number: JP-FERRINGPH-2016FE06851

PATIENT

DRUGS (10)
  1. PROGEHORMON [Concomitant]
     Indication: PREGNANCY
     Dosage: 50 MG, DAILY
     Route: 030
     Dates: start: 20151013, end: 20151103
  2. HYSRON [Concomitant]
     Active Substance: MEDROXYPROGESTERONE
     Indication: PREGNANCY
     Dosage: 6 DF, DAILY
     Route: 048
     Dates: start: 20150929, end: 20151104
  3. GLUCOSE [Concomitant]
     Active Substance: DEXTROSE
     Indication: PREGNANCY
     Dosage: UNK
     Route: 065
     Dates: start: 20151025, end: 20151030
  4. ESTRANA [Concomitant]
     Active Substance: ESTRADIOL
     Indication: PREGNANCY
     Dosage: UNK
     Route: 062
     Dates: start: 20150915, end: 20151104
  5. ADONA                              /00056903/ [Concomitant]
     Active Substance: CARBAZOCHROME SODIUM SULFONATE
     Indication: PREGNANCY
     Dosage: UNK
     Route: 042
     Dates: start: 20151025, end: 20151030
  6. LUTINUS [Suspect]
     Active Substance: PROGESTERONE
     Indication: ASSISTED FERTILISATION
     Dosage: 300 MG, DAILY
     Route: 067
     Dates: start: 20150928, end: 20151104
  7. DACTIL [Concomitant]
     Indication: PREGNANCY
     Dosage: 3 DF, DAILY
     Route: 048
     Dates: start: 20151026, end: 20151031
  8. ADONA                              /00056903/ [Concomitant]
     Active Substance: CARBAZOCHROME SODIUM SULFONATE
     Indication: PREGNANCY
     Dosage: 3 DF, DAILY
     Route: 048
     Dates: start: 20151026, end: 20151031
  9. LUTINUS [Suspect]
     Active Substance: PROGESTERONE
     Dosage: 200 MG, DAILY
     Route: 067
     Dates: start: 20150927, end: 20150927
  10. DUVADILAN [Concomitant]
     Active Substance: ISOXSUPRINE HYDROCHLORIDE
     Indication: PREGNANCY
     Dosage: UNK
     Route: 030
     Dates: start: 20151025, end: 20151030

REACTIONS (2)
  - Subchorionic haematoma [Unknown]
  - Abortion threatened [Unknown]

NARRATIVE: CASE EVENT DATE: 20151025
